FAERS Safety Report 19828494 (Version 2)
Quarter: 2021Q3

REPORT INFORMATION
  Report Type: Spontaneous
  Country: JP (occurrence: JP)
  Receive Date: 20210914
  Receipt Date: 20210922
  Transmission Date: 20211014
  Serious: Yes (Hospitalization)
  Sender: FDA-Public Use
  Company Number: JP-WOODWARD-2021-JP-000451

PATIENT
  Sex: 0

DRUGS (1)
  1. DUTASTERIDE (UNSPECIFIED) [Suspect]
     Active Substance: DUTASTERIDE
     Indication: PRODUCT USED FOR UNKNOWN INDICATION
     Route: 050

REACTIONS (3)
  - Hospitalisation [Unknown]
  - Product use issue [Unknown]
  - Wrong technique in product usage process [Unknown]
